FAERS Safety Report 4567980-5 (Version None)
Quarter: 2005Q1

REPORT INFORMATION
  Report Type: 
  Country: None (occurrence: None)
  Receive Date: 20050128
  Receipt Date: 20050125
  Transmission Date: 20050727
  Serious: No
  Sender: FDA-Public Use
  Company Number: 500225410/PHRM2005FR00551

PATIENT
  Age: 28 Year
  Sex: Female

DRUGS (1)
  1. AK-FLUOR INJECTION, AKORN [Suspect]
     Indication: ANGIOGRAM RETINA
     Dosage: IV
     Route: 042

REACTIONS (3)
  - PERIORBITAL OEDEMA [None]
  - RASH PAPULAR [None]
  - THROAT TIGHTNESS [None]
